FAERS Safety Report 6876050-2 (Version None)
Quarter: 2010Q3

REPORT INFORMATION
  Report Type: 
  Country: None (occurrence: None)
  Receive Date: 20100727
  Receipt Date: 20100723
  Transmission Date: 20110219
  Serious: Yes (Other)
  Sender: FDA-Public Use
  Company Number: US-MERCK-1005USA04563

PATIENT
  Age: 43 Month
  Sex: Male
  Weight: 20 kg

DRUGS (6)
  1. SINGULAIR [Suspect]
     Indication: ASTHMA
     Route: 048
     Dates: start: 20100526, end: 20100527
  2. SINGULAIR [Suspect]
     Route: 048
     Dates: start: 20091001, end: 20100520
  3. SINGULAIR [Suspect]
     Indication: RHINITIS ALLERGIC
     Route: 048
     Dates: start: 20100526, end: 20100527
  4. SINGULAIR [Suspect]
     Route: 048
     Dates: start: 20091001, end: 20100520
  5. BUDESONIDE [Concomitant]
     Indication: ASTHMA
     Route: 055
     Dates: start: 20091201
  6. ALBUTEROL [Concomitant]
     Indication: ASTHMA
     Route: 055
     Dates: start: 20080101

REACTIONS (2)
  - AGGRESSION [None]
  - PHYSICAL ASSAULT [None]
